FAERS Safety Report 7622064-4 (Version None)
Quarter: 2011Q3

REPORT INFORMATION
  Report Type: 
  Country: None (occurrence: None)
  Receive Date: 20110720
  Receipt Date: 20101110
  Transmission Date: 20111222
  Serious: Yes (Other)
  Sender: FDA-Public Use
  Company Number: US-BAYER-201038113NA

PATIENT
  Age: 25 Year
  Sex: Female
  Weight: 79.365 kg

DRUGS (8)
  1. DROSPIRENONE AND ETHINYL ESTRADIOL [Suspect]
     Indication: ACNE
  2. NITROFURANT MACRO [Concomitant]
     Dosage: 100 MG, UNK
  3. YASMIN [Suspect]
     Indication: ACNE
     Dosage: UNK
     Dates: start: 20040101, end: 20050101
  4. JUNEL FE 1.5/30 [Concomitant]
  5. YAZ [Suspect]
     Indication: ACNE
  6. YASMIN [Suspect]
     Indication: PREMENSTRUAL SYNDROME
  7. IMITREX [Concomitant]
  8. ANTIMIGRAINE PREPARATIONS [Concomitant]

REACTIONS (7)
  - INJURY [None]
  - BACK PAIN [None]
  - CHOLECYSTITIS CHRONIC [None]
  - ABDOMINAL PAIN [None]
  - ABDOMINAL PAIN UPPER [None]
  - GALLBLADDER PAIN [None]
  - CHOLELITHIASIS [None]
